FAERS Safety Report 9173322 (Version 1)
Quarter: 2013Q1

REPORT INFORMATION
  Report Type: Spontaneous
  Country: GB (occurrence: None)
  Receive Date: 20130315
  Receipt Date: 20130315
  Transmission Date: 20140127
  Serious: Yes (Death, Other)
  Sender: FDA-Public Use
  Company Number: 2013P1003074

PATIENT
  Age: 2 Year
  Sex: Female

DRUGS (2)
  1. AMOXICILLIN + CLAVULANATE POTASSIUM [Suspect]
  2. AZITHROMYCIN [Suspect]

REACTIONS (3)
  - Drug reaction with eosinophilia and systemic symptoms [None]
  - International normalised ratio increased [None]
  - Pulmonary haemorrhage [None]
